FAERS Safety Report 6644770-0 (Version None)
Quarter: 2010Q1

REPORT INFORMATION
  Report Type: 
  Country: None (occurrence: None)
  Receive Date: 20100322
  Receipt Date: 20100308
  Transmission Date: 20100710
  Serious: Yes (Disabling, Other)
  Sender: FDA-Public Use
  Company Number: GB-CELGENEUS-167-21880-09120674

PATIENT
  Age: 83 Year
  Sex: Female

DRUGS (4)
  1. REVLIMID [Suspect]
     Indication: MYELOMA RECURRENCE
     Route: 048
     Dates: end: 20091117
  2. DEXAMETHASONE [Concomitant]
     Indication: MYELOMA RECURRENCE
     Route: 065
  3. AMEPROZOL [Concomitant]
     Indication: DRUG USE FOR UNKNOWN INDICATION
     Route: 065
  4. ACICLYZ [Concomitant]
     Indication: DRUG USE FOR UNKNOWN INDICATION
     Route: 065

REACTIONS (2)
  - DEAFNESS [None]
  - PSYCHOTIC DISORDER [None]
